FAERS Safety Report 7783127-6 (Version None)
Quarter: 2011Q3

REPORT INFORMATION
  Report Type: 
  Country: None (occurrence: None)
  Receive Date: 20110928
  Receipt Date: 20110923
  Transmission Date: 20111222
  Serious: Yes (Hospitalization)
  Sender: FDA-Public Use
  Company Number: PHHY2011US67726

PATIENT
  Sex: Female

DRUGS (2)
  1. EXJADE [Suspect]
     Indication: HAEMOCHROMATOSIS
  2. EXJADE [Suspect]
     Indication: SICKLE CELL ANAEMIA
     Dosage: 1500 MG, QD
     Route: 048
     Dates: start: 20110617

REACTIONS (2)
  - CARDIAC FAILURE CHRONIC [None]
  - SICKLE CELL ANAEMIA WITH CRISIS [None]
